FAERS Safety Report 22534796 (Version 1)
Quarter: 2023Q2

REPORT INFORMATION
  Report Type: Spontaneous
  Country: TR (occurrence: TR)
  Receive Date: 20230608
  Receipt Date: 20230608
  Transmission Date: 20230721
  Serious: Yes (Other)
  Sender: FDA-Public Use
  Company Number: TR-HRAPH01-2023000312

PATIENT
  Age: 21 Year
  Sex: Female
  Weight: 63 kg

DRUGS (1)
  1. ELLA [Suspect]
     Active Substance: ULIPRISTAL ACETATE
     Indication: Post coital contraception
     Dosage: 1*1
     Route: 048
     Dates: start: 20230305, end: 20230305

REACTIONS (3)
  - Abortion [Recovered/Resolved]
  - Unintended pregnancy [Recovered/Resolved]
  - Ovarian cyst [Unknown]

NARRATIVE: CASE EVENT DATE: 20230301
